FAERS Safety Report 16990434 (Version 1)
Quarter: 2019Q4

REPORT INFORMATION
  Report Type: Spontaneous
  Country: US (occurrence: US)
  Receive Date: 20191103
  Receipt Date: 20191103
  Transmission Date: 20200122
  Serious: No
  Sender: FDA-Public Use
  Company Number: None

PATIENT
  Age: 42 Year
  Sex: Female
  Weight: 62.1 kg

DRUGS (4)
  1. AMOXICILLIN. [Suspect]
     Active Substance: AMOXICILLIN
     Indication: SINUSITIS
     Dates: start: 20191029, end: 20191030
  2. VITA FUSION WOMEN MULTIVITAMIN [Concomitant]
  3. PHILLIPS COLON HEALTH [Concomitant]
  4. LISINOPRIL AND HYDROCHLOROTHIAZIDE [Concomitant]
     Active Substance: HYDROCHLOROTHIAZIDE\LISINOPRIL

REACTIONS (4)
  - Anxiety [None]
  - Agitation [None]
  - Inappropriate affect [None]
  - Nervousness [None]

NARRATIVE: CASE EVENT DATE: 20191030
